FAERS Safety Report 10953491 (Version 1)
Quarter: 2015Q1

REPORT INFORMATION
  Report Type: Spontaneous
  Country: US (occurrence: None)
  Receive Date: 20150226
  Receipt Date: 20150226
  Transmission Date: 20150721
  Serious: No
  Sender: FDA-Public Use
  Company Number: TPA2009A03526

PATIENT
  Age: 88 Year
  Sex: Male

DRUGS (8)
  1. UROXATRAL (ALFUZOSIN HYDROCHLORIDE) [Concomitant]
  2. COCUTIN (ALL OTHER THERAPEUTIC PRODUCTS) [Concomitant]
  3. ULORIC [Suspect]
     Active Substance: FEBUXOSTAT
     Indication: GOUT
     Dosage: 1 IN 1 D
     Route: 048
     Dates: start: 20090730, end: 20091026
  4. PRAVASTATIN [Concomitant]
     Active Substance: PRAVASTATIN\PRAVASTATIN SODIUM
  5. CALCITRIOL. [Concomitant]
     Active Substance: CALCITRIOL
  6. ASPIRIN (ACETYLSALICYLIC ACID) [Concomitant]
     Active Substance: ASPIRIN
  7. LASIX [Concomitant]
     Active Substance: FUROSEMIDE
  8. TOPROL XL (METOPROLOL SUCCINATE) [Concomitant]

REACTIONS (2)
  - Pain in extremity [None]
  - Oedema peripheral [None]

NARRATIVE: CASE EVENT DATE: 2009
